FAERS Safety Report 13167299 (Version 2)
Quarter: 2017Q1

REPORT INFORMATION
  Report Type: Spontaneous
  Country: US (occurrence: US)
  Receive Date: 20170131
  Receipt Date: 20170224
  Transmission Date: 20170428
  Serious: Yes (Congenital Anomaly)
  Sender: FDA-Public Use
  Company Number: US-BIOGEN-2017BI00349114

PATIENT
  Age: 0 Day
  Sex: Female

DRUGS (3)
  1. TYSABRI [Suspect]
     Active Substance: NATALIZUMAB
     Indication: MATERNAL EXPOSURE TIMING UNSPECIFIED
     Route: 064
     Dates: start: 20100707, end: 20110616
  2. TYSABRI [Suspect]
     Active Substance: NATALIZUMAB
     Route: 064
     Dates: start: 20150512
  3. TYSABRI [Suspect]
     Active Substance: NATALIZUMAB
     Route: 064
     Dates: start: 20120612, end: 20140925

REACTIONS (4)
  - Foetal exposure timing unspecified [Recovered/Resolved]
  - Cleft lip [Unknown]
  - Cleft palate [Unknown]
  - Foetal growth restriction [Unknown]

NARRATIVE: CASE EVENT DATE: 20151015
